FAERS Safety Report 8558581-2 (Version None)
Quarter: 2012Q3

REPORT INFORMATION
  Report Type: 
  Country: None (occurrence: None)
  Receive Date: 20120801
  Receipt Date: 20120718
  Transmission Date: 20120928
  Serious: No
  Sender: FDA-Public Use
  Company Number: US-ASTRAZENECA-2012SE39808

PATIENT
  Sex: Male

DRUGS (2)
  1. SYMBICORT [Suspect]
     Dosage: 80/4.5, 2 PUFFS TWICE A DAY
     Route: 055
  2. SYMBICORT [Suspect]
     Dosage: 80/4.5 MCG, ONE PUFF TWICE DAILY/ I INHALATION BID AS NEEDED AFTER EXERCISE
     Route: 055

REACTIONS (4)
  - CIRCUMSTANCE OR INFORMATION CAPABLE OF LEADING TO MEDICATION ERROR [None]
  - OFF LABEL USE [None]
  - PHARYNGITIS [None]
  - LARYNGITIS [None]
